FAERS Safety Report 4618498-2 (Version None)
Quarter: 2005Q1

REPORT INFORMATION
  Report Type: 
  Country: None (occurrence: None)
  Receive Date: 20050323
  Receipt Date: 20050301
  Transmission Date: 20050727
  Serious: Yes (Hospitalization)
  Sender: FDA-Public Use
  Company Number: EWC050142290

PATIENT
  Sex: Male

DRUGS (2)
  1. FLUOXETINE [Suspect]
     Dosage: 30 MG/1
  2. PHENYTOIN SODIUM [Concomitant]

REACTIONS (2)
  - CIRCULATORY COLLAPSE [None]
  - MALAISE [None]
